FAERS Safety Report 24464434 (Version 1)
Quarter: 2024Q4

REPORT INFORMATION
  Report Type: Report from Study
  Country: US (occurrence: US)
  Receive Date: 20241018
  Receipt Date: 20241018
  Transmission Date: 20250115
  Serious: No
  Sender: ROCHE
  Company Number: US-ROCHE-3498092

PATIENT
  Age: 34 Year
  Sex: Female
  Weight: 76.66 kg

DRUGS (2)
  1. XOLAIR [Suspect]
     Active Substance: OMALIZUMAB
     Indication: Urticaria
     Dosage: WHEN ADMINISTERED XOLAIR RECEIVED TWO INJECTIONS 150MG EACH, ADMINISTERED IN STOMACH
     Route: 058
     Dates: start: 202010, end: 20231214
  2. XOLAIR [Suspect]
     Active Substance: OMALIZUMAB

REACTIONS (1)
  - Urticaria [Not Recovered/Not Resolved]

NARRATIVE: CASE EVENT DATE: 20240115
